FAERS Safety Report 23723712 (Version 1)
Quarter: 2024Q2

REPORT INFORMATION
  Report Type: Spontaneous
  Country: KR (occurrence: KR)
  Receive Date: 20240409
  Receipt Date: 20240409
  Transmission Date: 20240716
  Serious: Yes (Other)
  Sender: FDA-Public Use
  Company Number: KR-TAKEDA-2024TUS031231

PATIENT
  Age: 68 Year
  Sex: Female

DRUGS (3)
  1. PANTOPRAZOLE SODIUM [Suspect]
     Active Substance: PANTOPRAZOLE SODIUM
     Indication: Peptic ulcer
     Dosage: 1 DOSAGE FORM, QD
     Route: 065
     Dates: start: 20210120
  2. MOSAPRIDE CITRATE DIHYDRATE [Concomitant]
     Active Substance: MOSAPRIDE CITRATE DIHYDRATE
     Indication: Peptic ulcer
     Dosage: 1 DOSAGE FORM
     Dates: start: 20210120
  3. REBAMIPIDE [Concomitant]
     Active Substance: REBAMIPIDE
     Indication: Peptic ulcer
     Dosage: 1 DOSAGE FORM
     Dates: start: 20210120

REACTIONS (1)
  - Respiratory distress [Recovering/Resolving]

NARRATIVE: CASE EVENT DATE: 20210120
